FAERS Safety Report 8815363 (Version 1)
Quarter: 2012Q4

REPORT INFORMATION
  Report Type: 
  Country: US (occurrence: US)
  Receive Date: 20120928
  Receipt Date: 20120928
  Transmission Date: 20130627
  Serious: Yes (Hospitalization, Other)
  Sender: FDA-Public Use
  Company Number: CHPA2012US020044

PATIENT
  Age: 49 Year
  Sex: Female

DRUGS (2)
  1. EXCEDRIN EXTRA STRENGTH [Suspect]
     Indication: MIGRAINE
     Dosage: 1-2 tabs most days
     Route: 048
     Dates: end: 201204
  2. EXCEDRIN EXTRA STRENGTH [Suspect]
     Dosage: 1-2 tabs most days
     Route: 048
     Dates: start: 201204

REACTIONS (8)
  - Myoclonus [Recovered/Resolved]
  - Asthenia [Recovered/Resolved]
  - Tremor [Recovered/Resolved]
  - Speech disorder [Recovered/Resolved]
  - Muscle tightness [Recovered/Resolved]
  - Vitamin B12 deficiency [Recovered/Resolved]
  - Blood cholesterol increased [Recovered/Resolved]
  - Underdose [Unknown]
